FAERS Safety Report 5524787-X (Version None)
Quarter: 2007Q4

REPORT INFORMATION
  Report Type: 
  Country: None (occurrence: None)
  Receive Date: 20071125
  Receipt Date: 20071113
  Transmission Date: 20080405
  Serious: Yes (Hospitalization)
  Sender: FDA-Public Use
  Company Number: CA-JNJFOC-20071105025

PATIENT
  Age: 57 Year
  Sex: Male

DRUGS (3)
  1. REMICADE [Suspect]
     Route: 042
  2. REMICADE [Suspect]
     Indication: DRUG USE FOR UNKNOWN INDICATION
     Route: 042
  3. ANTIBIOTICS [Concomitant]
     Indication: ANAL ABSCESS

REACTIONS (2)
  - ANAL ABSCESS [None]
  - ANAL FISTULA [None]
